FAERS Safety Report 23596832 (Version 1)
Quarter: 2024Q1

REPORT INFORMATION
  Report Type: Spontaneous
  Country: US (occurrence: US)
  Receive Date: 20240305
  Receipt Date: 20240305
  Transmission Date: 20240410
  Serious: No
  Sender: FDA-Public Use
  Company Number: US-PFIZER INC-202400056334

PATIENT
  Age: 64 Year
  Sex: Male

DRUGS (17)
  1. PAXLOVID [Suspect]
     Active Substance: NIRMATRELVIR\RITONAVIR
     Indication: COVID-19 treatment
     Dosage: UNK
     Dates: start: 20240218, end: 20240222
  2. METOPROLOL [Concomitant]
     Active Substance: METOPROLOL
     Indication: Blood pressure abnormal
     Dosage: UNK
     Dates: start: 202001
  3. AMLODIPINE [Concomitant]
     Active Substance: AMLODIPINE BESYLATE
     Indication: Blood pressure abnormal
     Dosage: UNK
     Dates: start: 202101
  4. LIPITOR [Concomitant]
     Active Substance: ATORVASTATIN CALCIUM
     Indication: Blood cholesterol
     Dosage: UNK
     Dates: start: 199901
  5. VALSARTAN [Concomitant]
     Active Substance: VALSARTAN
     Indication: Blood pressure abnormal
     Dosage: UNK
     Dates: start: 201901
  6. FINASTERIDE [Concomitant]
     Active Substance: FINASTERIDE
     Dosage: UNK
     Dates: start: 199901
  7. TAMSULOSIN [Concomitant]
     Active Substance: TAMSULOSIN
     Dosage: UNK
     Dates: start: 199901
  8. PERCOCET [Concomitant]
     Active Substance: ACETAMINOPHEN\OXYCODONE HYDROCHLORIDE
     Indication: Back pain
     Dosage: UNK
     Dates: start: 201501
  9. SYMPROIC [Concomitant]
     Active Substance: NALDEMEDINE
     Indication: Constipation
     Dosage: UNK
     Dates: start: 201501
  10. PRILOSEC [Concomitant]
     Active Substance: OMEPRAZOLE MAGNESIUM
     Indication: Dyspepsia
     Dosage: UNK
     Dates: start: 199901
  11. HYDROCHLOROTHIAZIDE [Concomitant]
     Active Substance: HYDROCHLOROTHIAZIDE
     Indication: Blood pressure abnormal
     Dosage: UNK
     Dates: start: 201901
  12. AMITRIPTYLINE [Concomitant]
     Active Substance: AMITRIPTYLINE
     Indication: Sleep disorder
     Dosage: UNK
     Dates: start: 202201
  13. EZETIMIBE [Concomitant]
     Active Substance: EZETIMIBE
     Indication: Blood cholesterol increased
     Dosage: UNK
     Dates: start: 202311
  14. VITAMINS NOS [Concomitant]
     Active Substance: VITAMINS
     Dosage: UNK
     Dates: start: 199901
  15. VITAMIN E [Concomitant]
     Active Substance: .ALPHA.-TOCOPHEROL
     Dosage: UNK
     Dates: start: 199901
  16. VITAMIN C [Concomitant]
     Active Substance: ASCORBIC ACID
     Dosage: UNK
     Dates: start: 199901
  17. FISH OIL [Concomitant]
     Active Substance: FISH OIL
     Dosage: UNK
     Dates: start: 199901

REACTIONS (2)
  - COVID-19 [Not Recovered/Not Resolved]
  - Disease recurrence [Not Recovered/Not Resolved]

NARRATIVE: CASE EVENT DATE: 20240229
